FAERS Safety Report 12255322 (Version 2)
Quarter: 2016Q2

REPORT INFORMATION
  Report Type: Spontaneous
  Country: US (occurrence: US)
  Receive Date: 20160412
  Receipt Date: 20160426
  Transmission Date: 20160815
  Serious: Yes (Other)
  Sender: FDA-Public Use
  Company Number: US-BEH-2016060857

PATIENT
  Age: 61 Year
  Sex: Female
  Weight: 69 kg

DRUGS (15)
  1. PROVENTIL [Concomitant]
     Active Substance: ALBUTEROL
  2. DIPHENHYDRAMINE. [Concomitant]
     Active Substance: DIPHENHYDRAMINE
  3. ADVAIR HFA [Concomitant]
     Active Substance: FLUTICASONE PROPIONATE\SALMETEROL XINAFOATE
  4. SINGULAIR [Concomitant]
     Active Substance: MONTELUKAST SODIUM
  5. COMPLETE MULTIVITAMIN [Concomitant]
     Active Substance: VITAMINS
  6. HIZENTRA [Suspect]
     Active Substance: HUMAN IMMUNOGLOBULIN G
     Indication: IMMUNODEFICIENCY COMMON VARIABLE
     Route: 058
  7. PULMOZYME [Concomitant]
     Active Substance: DORNASE ALFA
  8. OMEGA-3 ACIDS [Concomitant]
     Active Substance: OMEGA-3 FATTY ACIDS
  9. ZYRTEC [Concomitant]
     Active Substance: CETIRIZINE HYDROCHLORIDE
  10. BETAMETHASONE AC [Concomitant]
  11. EPIPEN [Concomitant]
     Active Substance: EPINEPHRINE
  12. RANITIDINE. [Concomitant]
     Active Substance: RANITIDINE
  13. MAGNESIUM [Concomitant]
     Active Substance: MAGNESIUM
  14. PROBIOTIC [Concomitant]
     Active Substance: PROBIOTICS NOS
  15. LMX [Concomitant]
     Active Substance: LIDOCAINE

REACTIONS (1)
  - Pneumonia [Recovering/Resolving]

NARRATIVE: CASE EVENT DATE: 201511
